FAERS Safety Report 14972785 (Version 2)
Quarter: 2018Q2

REPORT INFORMATION
  Report Type: Report from Study
  Country: MX (occurrence: MX)
  Receive Date: 20180605
  Receipt Date: 20180611
  Transmission Date: 20180711
  Serious: Yes (Hospitalization, Other)
  Sender: FDA-Public Use
  Company Number: MX-UCBSA-2018023611

PATIENT
  Age: 48 Year
  Sex: Female
  Weight: 58 kg

DRUGS (9)
  1. BRIVARACETAM [Suspect]
     Active Substance: BRIVARACETAM
     Indication: TONIC CONVULSION
     Dosage: 50 MG, 2X/DAY (BID)
     Route: 048
     Dates: start: 201805
  2. LEVOTHYROXINE. [Concomitant]
     Active Substance: LEVOTHYROXINE
     Indication: HYPOTHYROIDISM
  3. KEPPRA [Suspect]
     Active Substance: LEVETIRACETAM
     Indication: TONIC CONVULSION
     Dosage: INITIAL DOSE OF ? OF A 500MG TABLET/8 HOURS 3X/DAY (TID)
     Route: 048
     Dates: start: 20120127
  4. TEMPRA [Concomitant]
     Active Substance: ACETAMINOPHEN
     Indication: MYALGIA
  5. TAFIL [Concomitant]
     Active Substance: ALPRAZOLAM
     Indication: MYALGIA
  6. KEPPRA [Suspect]
     Active Substance: LEVETIRACETAM
     Dosage: 500MG ? OF A TABLET AT THE MORNING AND 2 TABLETS AT THE NIGHT
     Route: 048
     Dates: start: 20180514
  7. KEPPRA [Suspect]
     Active Substance: LEVETIRACETAM
     Dosage: 1000 MG, 2X/DAY (BID)
     Route: 048
     Dates: start: 201702
  8. DOLAC [Concomitant]
     Indication: MYALGIA
     Dosage: UNK
  9. ATACAND [Concomitant]
     Active Substance: CANDESARTAN CILEXETIL
     Indication: BLOOD PRESSURE ABNORMAL

REACTIONS (9)
  - Somnolence [Not Recovered/Not Resolved]
  - Off label use [Unknown]
  - Petit mal epilepsy [Not Recovered/Not Resolved]
  - Hypertension [Recovering/Resolving]
  - Dizziness [Unknown]
  - Drug ineffective [Unknown]
  - Generalised tonic-clonic seizure [Unknown]
  - Myalgia [Unknown]
  - Anxiety [Recovering/Resolving]

NARRATIVE: CASE EVENT DATE: 2012
